FAERS Safety Report 7453263-2 (Version None)
Quarter: 2011Q2

REPORT INFORMATION
  Report Type: 
  Country: None (occurrence: None)
  Receive Date: 20110502
  Receipt Date: 20101202
  Transmission Date: 20111010
  Serious: No
  Sender: FDA-Public Use
  Company Number: US-ASTRAZENECA-2010SE57360

PATIENT
  Sex: Female

DRUGS (2)
  1. NEXIUM [Suspect]
     Route: 048
  2. ANTIBIOTIC [Suspect]

REACTIONS (5)
  - ADVERSE DRUG REACTION [None]
  - AMNESIA [None]
  - SINUSITIS [None]
  - MALAISE [None]
  - PNEUMONIA [None]
